FAERS Safety Report 4318584-0 (Version None)
Quarter: 2004Q1

REPORT INFORMATION
  Report Type: 
  Country: None (occurrence: None)
  Receive Date: 20040318
  Receipt Date: 20040309
  Transmission Date: 20041129
  Serious: Yes (Other)
  Sender: FDA-Public Use
  Company Number: PHBS2004HU03183

PATIENT
  Age: 70 Year
  Sex: Female
  Weight: 69 kg

DRUGS (5)
  1. LESCOL [Suspect]
     Indication: HYPERCHOLESTEROLAEMIA
     Dosage: 40 MG/DAY
     Route: 048
     Dates: start: 20030605, end: 20030923
  2. LESCOL XL [Suspect]
     Indication: HYPERCHOLESTEROLAEMIA
     Dosage: 80 MG/DAY
     Route: 048
     Dates: start: 20030923, end: 20031022
  3. VENTOLIN [Concomitant]
     Indication: ASTHMA
  4. PULMICORT [Concomitant]
     Indication: ASTHMA
  5. EUPHYLLINE - SLOW RELEASE [Concomitant]
     Indication: ASTHMA

REACTIONS (7)
  - ABDOMINAL PAIN [None]
  - ALANINE AMINOTRANSFERASE INCREASED [None]
  - ASPARTATE AMINOTRANSFERASE INCREASED [None]
  - BLOOD ALKALINE PHOSPHATASE INCREASED [None]
  - FAECES DISCOLOURED [None]
  - GAMMA-GLUTAMYLTRANSFERASE INCREASED [None]
  - NAUSEA [None]
